FAERS Safety Report 6390877-5 (Version None)
Quarter: 2009Q4

REPORT INFORMATION
  Report Type: 
  Country: None (occurrence: None)
  Receive Date: 20091006
  Receipt Date: 20090929
  Transmission Date: 20100525
  Serious: Yes (Other)
  Sender: FDA-Public Use
  Company Number: US-JNJCH-2009026319

PATIENT
  Age: 79 Year
  Sex: Female
  Weight: 65.8 kg

DRUGS (7)
  1. ZYRTEC [Suspect]
     Indication: HYPERSENSITIVITY
     Route: 048
     Dates: start: 20090919, end: 20090920
  2. PREMARIN [Concomitant]
     Indication: HORMONE REPLACEMENT THERAPY
     Dosage: TEXT:0.3MG  1X DAILY
     Route: 065
  3. CRESTOR [Concomitant]
     Indication: BLOOD CHOLESTEROL
     Dosage: TEXT:5MG 1X DAILY
     Route: 065
  4. AMLODIPINE [Concomitant]
     Indication: BLOOD PRESSURE
     Dosage: TEXT:2.5MG 1X DAILY
     Route: 065
  5. SYNTHROID [Concomitant]
     Indication: THYROID DISORDER
     Dosage: TEXT:75MCG 1X DAILY
     Route: 065
  6. LISINOPRIL AND HYDROCHLOROTHIAZIDE [Concomitant]
     Indication: BLOOD PRESSURE
     Dosage: TEXT:20/12.5MG 1X DAILY
     Route: 065
  7. ACETYLSALICYLIC ACID [Concomitant]
     Indication: CARDIOVASCULAR EVENT PROPHYLAXIS
     Dosage: TEXT:81MG 1X DAILY
     Route: 065

REACTIONS (5)
  - BACK PAIN [None]
  - DEPRESSION [None]
  - PERSONALITY CHANGE [None]
  - SOMNOLENCE [None]
  - WRONG DRUG ADMINISTERED [None]
